FAERS Safety Report 16458889 (Version 1)
Quarter: 2019Q2

REPORT INFORMATION
  Report Type: Spontaneous
  Country: US (occurrence: US)
  Receive Date: 20190620
  Receipt Date: 20190620
  Transmission Date: 20190711
  Serious: No
  Sender: FDA-Public Use
  Company Number: US-THERAPEUTICSMD-2019TMD00953

PATIENT
  Age: 67 Year
  Sex: Female

DRUGS (2)
  1. IMVEXXY [Suspect]
     Active Substance: ESTRADIOL
     Dosage: UNK UNK, 2X/WEEK
     Dates: start: 20190507
  2. IMVEXXY [Suspect]
     Active Substance: ESTRADIOL
     Dosage: UNK UNK, 1X/DAY
     Dates: start: 201904, end: 201905

REACTIONS (1)
  - Contusion [Unknown]

NARRATIVE: CASE EVENT DATE: 20190505
